FAERS Safety Report 7267294-9 (Version None)
Quarter: 2011Q1

REPORT INFORMATION
  Report Type: 
  Country: None (occurrence: None)
  Receive Date: 20110201
  Receipt Date: 20110125
  Transmission Date: 20110831
  Serious: Yes (Hospitalization, Other)
  Sender: FDA-Public Use
  Company Number: US-SANOFI-AVENTIS-2010SA026700

PATIENT
  Age: 65 Year
  Sex: Female

DRUGS (21)
  1. NASACORT AQ [Interacting]
     Dosage: 1 SPRAY IN EACH NOSTRIL
     Route: 045
     Dates: start: 20100505, end: 20100506
  2. NASACORT AQ [Interacting]
     Dosage: 1 SPRAY IN EACH NOSTRIL
     Route: 045
     Dates: start: 20100508
  3. ALL OTHER THERAPEUTIC PRODUCTS [Concomitant]
  4. TOPROL-XL [Concomitant]
     Dosage: DOSE:12.5 UNIT(S)
  5. LISINOPRIL [Concomitant]
  6. NASACORT AQ [Interacting]
     Dosage: USED FOUR TO FIVE TIMES A DAY
     Route: 045
  7. INSULIN [Concomitant]
  8. AZMACORT [Concomitant]
     Dates: end: 20100505
  9. NASACORT AQ [Interacting]
     Indication: RHINITIS
     Dosage: 1 SPRAY IN EACH NOSTRIL
     Route: 045
     Dates: start: 20100505, end: 20100506
  10. NASACORT AQ [Interacting]
     Dosage: 1 SPRAY IN EACH NOSTRIL
     Route: 045
     Dates: start: 20100508
  11. NASACORT AQ [Interacting]
     Dosage: USED FOUR TO FIVE TIMES A DAY
     Route: 045
  12. ALBUTEROL [Interacting]
     Route: 055
  13. VALIUM [Concomitant]
  14. ASPIRIN [Concomitant]
  15. NASACORT AQ [Interacting]
     Dosage: USED FOUR TO FIVE TIMES A DAY
     Route: 045
  16. XOPENEX [Interacting]
     Route: 055
  17. NASACORT AQ [Interacting]
     Dosage: 1 SPRAY IN EACH NOSTRIL
     Route: 045
     Dates: start: 20100508
  18. CRESTOR [Concomitant]
  19. OTHER HORMONES [Concomitant]
     Dates: start: 19960101
  20. NASACORT AQ [Suspect]
     Indication: ASTHMA
     Dosage: 1 SPRAY IN EACH NOSTRIL
     Route: 045
     Dates: start: 20100505, end: 20100506
  21. NASONEX [Concomitant]
     Dates: end: 20100505

REACTIONS (22)
  - BLINDNESS [None]
  - HYPERSENSITIVITY [None]
  - HEADACHE [None]
  - OVERDOSE [None]
  - DRUG INTERACTION [None]
  - APHONIA [None]
  - NASAL CONGESTION [None]
  - LOSS OF CONSCIOUSNESS [None]
  - PALATAL OEDEMA [None]
  - LARYNGOSPASM [None]
  - CHEST PAIN [None]
  - CHEST DISCOMFORT [None]
  - MENTAL IMPAIRMENT [None]
  - DYSPHONIA [None]
  - PHARYNGITIS [None]
  - DIZZINESS [None]
  - CATARACT [None]
  - THROAT TIGHTNESS [None]
  - NAUSEA [None]
  - DYSPNOEA [None]
  - INTRAOCULAR PRESSURE INCREASED [None]
  - DRUG INEFFECTIVE [None]
